FAERS Safety Report 6071820-5 (Version None)
Quarter: 2009Q1

REPORT INFORMATION
  Report Type: 
  Country: None (occurrence: None)
  Receive Date: 20090210
  Receipt Date: 20090203
  Transmission Date: 20090719
  Serious: Yes (Life-Threatening)
  Sender: FDA-Public Use
  Company Number: PHHY2009CA04083

PATIENT
  Sex: Female

DRUGS (1)
  1. ACLASTA [Suspect]
     Indication: OSTEOPOROSIS
     Dosage: UNK
     Dates: start: 20080215

REACTIONS (8)
  - ASTHENIA [None]
  - BONE PAIN [None]
  - DIARRHOEA [None]
  - INFLUENZA LIKE ILLNESS [None]
  - MIGRAINE [None]
  - MYALGIA [None]
  - SUICIDAL IDEATION [None]
  - VOMITING [None]
